FAERS Safety Report 4778427-8 (Version None)
Quarter: 2005Q3

REPORT INFORMATION
  Report Type: 
  Country: None (occurrence: None)
  Receive Date: 20050926
  Receipt Date: 20050916
  Transmission Date: 20060218
  Serious: Yes (Hospitalization)
  Sender: FDA-Public Use
  Company Number: CH-JNJFOC-20050904068

PATIENT
  Sex: Female

DRUGS (3)
  1. RISPERDAL [Suspect]
     Indication: SCHIZOAFFECTIVE DISORDER
     Route: 048
  2. VENLAFAXINE HCL [Interacting]
     Route: 048
     Dates: start: 20050423, end: 20050427
  3. SAROTEN [Concomitant]
     Route: 048

REACTIONS (8)
  - CHILLS [None]
  - DIZZINESS [None]
  - DRUG INTERACTION [None]
  - HYPERHIDROSIS [None]
  - INSOMNIA [None]
  - RESTLESSNESS [None]
  - SOMNOLENCE [None]
  - VERTIGO [None]
